FAERS Safety Report 21081509 (Version 1)
Quarter: 2022Q3

REPORT INFORMATION
  Report Type: Report from Study
  Country: GB (occurrence: GB)
  Receive Date: 20220714
  Receipt Date: 20220714
  Transmission Date: 20221026
  Serious: Yes (Hospitalization)
  Sender: FDA-Public Use
  Company Number: GB-ABBVIE-22K-167-4304053-00

PATIENT
  Sex: Male

DRUGS (7)
  1. CARBIDOPA\LEVODOPA [Suspect]
     Active Substance: CARBIDOPA\LEVODOPA
     Indication: Parkinson^s disease
     Dosage: 24HR DAY PUMP MD 4.5 CR 4.0 ED 3.0 NIGHT PUMP CR 2.7 ED 2.7
     Route: 050
  2. CARBIDOPA\LEVODOPA [Suspect]
     Active Substance: CARBIDOPA\LEVODOPA
     Dosage: 4.2ML/HOUR DURING THE DAY AND 2.7ML/HOUR AT NIGHT
     Route: 050
  3. CARBIDOPA\LEVODOPA [Suspect]
     Active Substance: CARBIDOPA\LEVODOPA
     Dosage: MD 4.5, CR 4.3, ED 3 NIGHT, CR 2.7
     Route: 050
  4. BENSERAZIDE HYDROCHLORIDE\LEVODOPA [Concomitant]
     Active Substance: BENSERAZIDE HYDROCHLORIDE\LEVODOPA
     Indication: Product used for unknown indication
     Dosage: 25/100 AT 06:00 MORNING
  5. BENSERAZIDE HYDROCHLORIDE\LEVODOPA [Concomitant]
     Active Substance: BENSERAZIDE HYDROCHLORIDE\LEVODOPA
     Indication: Product used for unknown indication
     Dosage: 100/25/ 06:00, 12:00, 17:00
  6. BENSERAZIDE HYDROCHLORIDE\LEVODOPA [Concomitant]
     Active Substance: BENSERAZIDE HYDROCHLORIDE\LEVODOPA
     Dosage: 62.5MG/ 08:00, 15:00, 20:00
  7. BENSERAZIDE HYDROCHLORIDE\LEVODOPA [Concomitant]
     Active Substance: BENSERAZIDE HYDROCHLORIDE\LEVODOPA
     Indication: Product used for unknown indication
     Dosage: IMMEDIATE RELEASE 25/100
     Route: 065

REACTIONS (17)
  - Hospitalisation [Unknown]
  - Wrong technique in device usage process [Unknown]
  - Inappropriate schedule of product administration [Unknown]
  - Device use issue [Unknown]
  - Cognitive disorder [Unknown]
  - Disturbance in attention [Unknown]
  - Arthralgia [Unknown]
  - Face injury [Unknown]
  - Mobility decreased [Unknown]
  - Fatigue [Unknown]
  - Tremor [Recovered/Resolved]
  - Gait disturbance [Unknown]
  - Fall [Unknown]
  - Drug ineffective [Unknown]
  - Muscle rigidity [Unknown]
  - Freezing phenomenon [Not Recovered/Not Resolved]
  - Dizziness [Unknown]

NARRATIVE: CASE EVENT DATE: 20220101
